FAERS Safety Report 9662602 (Version 2)
Quarter: 2013Q4

REPORT INFORMATION
  Report Type: Spontaneous
  Country: US (occurrence: US)
  Receive Date: 20131031
  Receipt Date: 20131031
  Transmission Date: 20140711
  Serious: No
  Sender: FDA-Public Use
  Company Number: US-PURDUE-USA-2011-0066457

PATIENT
  Sex: Male

DRUGS (3)
  1. OXYCONTIN (NDA 22-272) [Suspect]
     Indication: PRODUCT USED FOR UNKNOWN INDICATION
     Dosage: 60 MG, UNK
     Dates: start: 201008
  2. OXYCONTIN (NDA 22-272) [Suspect]
     Dosage: 80 MG, QID
  3. STEROID DOSE PACK [Concomitant]
     Indication: RASH

REACTIONS (2)
  - Rash [Unknown]
  - Drug ineffective [Unknown]
